FAERS Safety Report 21146927 (Version 4)
Quarter: 2023Q4

REPORT INFORMATION
  Report Type: Other
  Country: US (occurrence: None)
  Receive Date: 20220729
  Receipt Date: 20231108
  Transmission Date: 20240109
  Serious: Yes (Other)
  Sender: FDA-Public Use
  Company Number: US-ROCHE-2600468

PATIENT
  Age: 31 Year
  Sex: Female
  Weight: 95.34 kg

DRUGS (3)
  1. RITUXAN [Suspect]
     Active Substance: RITUXIMAB
     Indication: Relapsing multiple sclerosis
     Route: 065
     Dates: start: 20200708
  2. OCREVUS [Suspect]
     Active Substance: OCRELIZUMAB
     Indication: Relapsing-remitting multiple sclerosis
     Route: 042
     Dates: start: 2020
  3. OCREVUS [Suspect]
     Active Substance: OCRELIZUMAB
     Dosage: 300 MG PPI AND REPEAT FOR EVERY 2 WEEKS
     Route: 042

REACTIONS (2)
  - Off label use [Unknown]
  - Demyelination [Unknown]

NARRATIVE: CASE EVENT DATE: 20220801
